FAERS Safety Report 5165526-4 (Version None)
Quarter: 2006Q4

REPORT INFORMATION
  Report Type: 
  Country: None (occurrence: None)
  Receive Date: 20061124
  Receipt Date: 20061109
  Transmission Date: 20070319
  Serious: Yes (Other)
  Sender: FDA-Public Use
  Company Number: 2006140011

PATIENT
  Age: 54 Year
  Sex: Male

DRUGS (5)
  1. MINIPRESS [Suspect]
     Dosage: ORAL
     Route: 048
  2. ZONISAMIDE [Suspect]
     Dosage: ORAL
     Route: 048
  3. TEGRETOL [Suspect]
     Dosage: ORAL
     Route: 048
  4. ZESTRIL [Suspect]
     Dosage: ORAL
     Route: 048
  5. URSO (URSODEOXYCHOLIC ACID) [Concomitant]

REACTIONS (1)
  - PURPURA [None]
